FAERS Safety Report 9729668 (Version 4)
Quarter: 2015Q4

REPORT INFORMATION
  Report Type: Spontaneous
  Country: US (occurrence: US)
  Receive Date: 20131204
  Receipt Date: 20151124
  Transmission Date: 20160305
  Serious: No
  Sender: FDA-Public Use
  Company Number: US-PURDUE-USA-2013-0108752

PATIENT
  Age: 51 Year
  Sex: Female

DRUGS (4)
  1. INTERMEZZO [Suspect]
     Active Substance: ZOLPIDEM TARTRATE
     Dosage: 1.75 MG, UNK
     Route: 060
     Dates: start: 201310, end: 20131022
  2. AMBIEN [Concomitant]
     Active Substance: ZOLPIDEM TARTRATE
     Indication: SLEEP APNOEA SYNDROME
     Dosage: 12.5 MG, PRN
  3. INTERMEZZO [Suspect]
     Active Substance: ZOLPIDEM TARTRATE
     Dosage: 3.5 MG, UNK
     Route: 060
     Dates: start: 20131022
  4. INTERMEZZO [Suspect]
     Active Substance: ZOLPIDEM TARTRATE
     Indication: INSOMNIA
     Dosage: 3.5 MG, PRN
     Route: 060

REACTIONS (7)
  - Nausea [Unknown]
  - Product solubility abnormal [Unknown]
  - Product taste abnormal [Unknown]
  - Dry mouth [Unknown]
  - Drug prescribing error [Unknown]
  - Drug delivery device implantation [Unknown]
  - Drug ineffective [Not Recovered/Not Resolved]

NARRATIVE: CASE EVENT DATE: 201310
